FAERS Safety Report 7763812-2 (Version None)
Quarter: 2011Q3

REPORT INFORMATION
  Report Type: 
  Country: None (occurrence: None)
  Receive Date: 20110919
  Receipt Date: 20110902
  Transmission Date: 20111222
  Serious: Yes (Other)
  Sender: FDA-Public Use
  Company Number: GB-ACCORD-010520

PATIENT
  Age: 76 Year
  Sex: Male

DRUGS (9)
  1. SIMVASTATIN [Suspect]
     Indication: PRODUCT USED FOR UNKNOWN INDICATION
     Dosage: 40.00 MG - 1.00 TIMES PER 1.0 DAYS
     Dates: start: 20110704
  2. CANDESARTAN CILEXETIL [Suspect]
     Indication: PRODUCT USED FOR UNKNOWN INDICATION
  3. ASPIRIN [Suspect]
     Indication: PRODUCT USED FOR UNKNOWN INDICATION
     Dosage: 75.00-MG,
     Dates: start: 20110517
  4. LOSARTAN POTASSIUM [Suspect]
     Indication: PRODUCT USED FOR UNKNOWN INDICATION
     Dosage: 100.00-MG-1.00 TIMES PER 1.0 DAYS
     Dates: start: 20110713
  5. BETA BLOCKING AGENTS (BETA BLOCKING AGENTS) [Suspect]
     Indication: PRODUCT USED FOR UNKNOWN INDICATION
  6. FLECAINIDE ACETATE [Concomitant]
  7. FINASTERIDE [Suspect]
     Indication: PRODUCT USED FOR UNKNOWN INDICATION
     Dosage: 5.00 MG, ORAL
     Route: 048
     Dates: start: 20110810
  8. TAMSULOSIN HCL [Suspect]
     Indication: PRODUCT USED FOR UNKNOWN INDICATION
  9. SENNA (SENNA) [Suspect]
     Indication: PRODUCT USED FOR UNKNOWN INDICATION
     Dosage: 7.50 MG

REACTIONS (12)
  - ATRIOVENTRICULAR BLOCK FIRST DEGREE [None]
  - VENTRICULAR EXTRASYSTOLES [None]
  - PALPITATIONS [None]
  - BLADDER TRABECULATION [None]
  - RENAL CYST [None]
  - LOSS OF CONSCIOUSNESS [None]
  - AORTIC BRUIT [None]
  - ELECTROCARDIOGRAM PR PROLONGATION [None]
  - DIZZINESS POSTURAL [None]
  - HEART VALVE INCOMPETENCE [None]
  - HAEMATURIA [None]
  - BLOOD PRESSURE SYSTOLIC INCREASED [None]
